FAERS Safety Report 18061637 (Version 2)
Quarter: 2020Q3

REPORT INFORMATION
  Report Type: Spontaneous
  Country: US (occurrence: US)
  Receive Date: 20200723
  Receipt Date: 20200806
  Transmission Date: 20201103
  Serious: Yes (Hospitalization, Other)
  Sender: FDA-Public Use
  Company Number: US-ASTRAZENECA-2020SE89830

PATIENT
  Age: 798 Month
  Sex: Female
  Weight: 67.6 kg

DRUGS (20)
  1. XANAX [Suspect]
     Active Substance: ALPRAZOLAM
     Dosage: 0.25 MG PRN
     Route: 065
  2. PREDNISONE. [Concomitant]
     Active Substance: PREDNISONE
  3. ZOSTER [Concomitant]
  4. XELJANZ [Suspect]
     Active Substance: TOFACITINIB CITRATE
     Indication: COLITIS ULCERATIVE
     Route: 048
  5. XELJANZ [Suspect]
     Active Substance: TOFACITINIB CITRATE
     Indication: COLITIS ULCERATIVE
     Route: 048
     Dates: start: 201902
  6. CHOLECALCIFEROL [Concomitant]
     Active Substance: CHOLECALCIFEROL
     Dosage: (1000 UNIT), TAKE 2000 UNITS BY MOUTH DAILY
  7. TRIAMCINOLONE [Concomitant]
     Active Substance: TRIAMCINOLONE
     Indication: RASH
     Dosage: 1 APPLICATION TWO TIMES DAILY AS NEEDED
  8. OMEPRAZOLE. [Suspect]
     Active Substance: OMEPRAZOLE
     Route: 048
  9. APRISO [Concomitant]
     Active Substance: MESALAMINE
  10. AMLODIPINE [Concomitant]
     Active Substance: AMLODIPINE BESYLATE
  11. ACETAMINOPHEN. [Concomitant]
     Active Substance: ACETAMINOPHEN
     Dosage: 325 MG BY MOUTH EVERY SIX HOURS AS NEEDED FOR PAIN
  12. BACLOFEN. [Concomitant]
     Active Substance: BACLOFEN
  13. GABAPENTIN. [Suspect]
     Active Substance: GABAPENTIN
     Indication: NEURALGIA
     Route: 065
  14. PREGABALIN. [Concomitant]
     Active Substance: PREGABALIN
  15. ROWASA [Concomitant]
     Active Substance: MESALAMINE
     Dosage: 4 GM/60 ML USE 1 PER RECTUM PRN
  16. ACYCLOVIR. [Concomitant]
     Active Substance: ACYCLOVIR
     Dosage: 200 MG BY MOUTH EVERY OTHER DAY
  17. GABAPENTIN. [Concomitant]
     Active Substance: GABAPENTIN
  18. CIMETIDINE [Concomitant]
     Active Substance: CIMETIDINE
     Dosage: 200 MG PRN
  19. NALTREXONE [Concomitant]
     Active Substance: NALTREXONE
     Dosage: FORMED BMS/DAY
  20. IMODIUM [Concomitant]
     Active Substance: LOPERAMIDE HYDROCHLORIDE
     Dosage: A?D 2 MG PRN

REACTIONS (30)
  - Cerebral ventricle dilatation [Unknown]
  - Haemorrhagic stroke [Unknown]
  - Pancreatic cyst [Unknown]
  - Chest pain [Unknown]
  - Facial neuralgia [Unknown]
  - Gait disturbance [Recovering/Resolving]
  - Intraductal papillary mucinous neoplasm [Unknown]
  - Glycosylated haemoglobin increased [Unknown]
  - Lichen planus [Unknown]
  - Dyslipidaemia [Unknown]
  - Basal ganglia haemorrhage [Unknown]
  - Colitis ulcerative [Unknown]
  - Gastrointestinal scarring [Unknown]
  - Anxiety [Unknown]
  - Panic attack [Unknown]
  - Osteoarthritis [Unknown]
  - Gastrooesophageal reflux disease [Unknown]
  - Body mass index increased [Unknown]
  - Peripheral swelling [Not Recovered/Not Resolved]
  - Musculoskeletal pain [Unknown]
  - Hydrocephalus [Unknown]
  - Hypertension [Unknown]
  - Renal cyst [Unknown]
  - Tinnitus [Unknown]
  - Spondylitis [Unknown]
  - Meningitis [Unknown]
  - Hypergammaglobulinaemia benign monoclonal [Unknown]
  - Dyspepsia [Unknown]
  - Herpes ophthalmic [Unknown]
  - Drug hypersensitivity [Unknown]

NARRATIVE: CASE EVENT DATE: 201912
